FAERS Safety Report 16431617 (Version 2)
Quarter: 2019Q2

REPORT INFORMATION
  Report Type: Report from Study
  Country: US (occurrence: US)
  Receive Date: 20190614
  Receipt Date: 20190614
  Transmission Date: 20190711
  Serious: Yes (Other)
  Sender: FDA-Public Use
  Company Number: PHEH2019US024596

PATIENT
  Sex: Male

DRUGS (2)
  1. MAYZENT [Suspect]
     Active Substance: SIPONIMOD
     Indication: RELAPSING MULTIPLE SCLEROSIS
     Route: 065
  2. GLATOPA [Suspect]
     Active Substance: GLATIRAMER ACETATE
     Indication: RELAPSING MULTIPLE SCLEROSIS
     Route: 065

REACTIONS (2)
  - Multiple sclerosis relapse [Not Recovered/Not Resolved]
  - General physical health deterioration [Not Recovered/Not Resolved]
